FAERS Safety Report 6435490-6 (Version None)
Quarter: 2009Q4

REPORT INFORMATION
  Report Type: 
  Country: None (occurrence: None)
  Receive Date: 20091111
  Receipt Date: 20091104
  Transmission Date: 20100525
  Serious: Yes (Hospitalization)
  Sender: FDA-Public Use
  Company Number: US-BIOGENIDEC-2009BI003322

PATIENT
  Age: 31 Year
  Sex: Female

DRUGS (2)
  1. TYSABRI [Suspect]
     Indication: MULTIPLE SCLEROSIS
     Route: 042
     Dates: start: 20080410, end: 20090107
  2. TYSABRI [Suspect]
     Route: 042
     Dates: start: 20090324

REACTIONS (3)
  - ASTHMA [None]
  - PNEUMONIA [None]
  - STATUS ASTHMATICUS [None]
